FAERS Safety Report 17708084 (Version 1)
Quarter: 2020Q2

REPORT INFORMATION
  Report Type: Spontaneous
  Country: FR (occurrence: FR)
  Receive Date: 20200425
  Receipt Date: 20200425
  Transmission Date: 20200714
  Serious: Yes (Hospitalization)
  Sender: FDA-Public Use
  Company Number: FR-ACCORD-179487

PATIENT
  Age: 83 Year
  Sex: Female

DRUGS (8)
  1. ALLOPURINOL. [Suspect]
     Active Substance: ALLOPURINOL
     Indication: GOUT
     Route: 048
  2. COLCHIMAX (COLCHICINE/DICYCLOVERINE HYDROCHLORIDE) [Suspect]
     Active Substance: COLCHICINE\DICYCLOMINE HYDROCHLORIDE
     Indication: PRODUCT USED FOR UNKNOWN INDICATION
     Dosage: FILM-COATED TABLET
     Route: 048
  3. MODOPAR [Concomitant]
     Active Substance: BENSERAZIDE HYDROCHLORIDE\LEVODOPA
     Dosage: 62,5 (50 MG/12,5 MG)
     Route: 048
  4. ATARAX [Concomitant]
     Active Substance: HYDROXYZINE HYDROCHLORIDE
     Dosage: 25 MG, SCORED FILM-COATED TABLET
     Route: 048
  5. RESITUNE [Concomitant]
     Active Substance: ASPIRIN
     Dosage: 75 MG, GASTRO-RESISTANT TABLET
     Route: 048
  6. BILASKA [Suspect]
     Active Substance: BILASTINE
     Indication: PRODUCT USED FOR UNKNOWN INDICATION
     Dosage: 20 MG, TABLET
     Route: 048
  7. BISOCE [Concomitant]
     Active Substance: BISOPROLOL
     Dosage: 5 MG, SCORED FILM-COATED TABLET
     Route: 048
  8. EUPRESSYL [Concomitant]
     Active Substance: URAPIDIL
     Dosage: 30 MG, CAPSULE
     Route: 048

REACTIONS (2)
  - Diarrhoea [Recovering/Resolving]
  - Proctitis [Recovering/Resolving]

NARRATIVE: CASE EVENT DATE: 201911
